FAERS Safety Report 17885890 (Version 2)
Quarter: 2021Q3

REPORT INFORMATION
  Report Type: Spontaneous
  Country: FR (occurrence: FR)
  Receive Date: 20200611
  Receipt Date: 20210705
  Transmission Date: 20211014
  Serious: Yes (Other)
  Sender: FDA-Public Use
  Company Number: NVSC2020FR161254

PATIENT
  Age: 48 Year
  Sex: Male
  Weight: 86 kg

DRUGS (6)
  1. TACROLIMUS. [Suspect]
     Active Substance: TACROLIMUS
     Indication: IMMUNOSUPPRESSION
     Dosage: 9 MG, QD
     Route: 048
     Dates: start: 20160909, end: 20191226
  2. CELLCEPT [Concomitant]
     Active Substance: MYCOPHENOLATE MOFETIL\MYCOPHENOLATE MOFETIL HYDROCHLORIDE
     Dosage: UNK (1000 UNKNOWN UNIT, TOTAL DAILY DOSE)
     Route: 065
     Dates: start: 20200306
  3. CORTANCYL [Concomitant]
     Active Substance: PREDNISONE
     Indication: IMMUNOSUPPRESSION
     Dosage: UNK (7.5 UNKNOWN UNIT, TOTAL DAILY DOSE )
     Route: 065
     Dates: start: 20160305, end: 20191226
  4. TACROLIMUS. [Suspect]
     Active Substance: TACROLIMUS
     Dosage: 6 MG, QD (6 MG, ONCE DAILY (REDUCED DOSE)
     Route: 048
  5. CELLCEPT [Concomitant]
     Active Substance: MYCOPHENOLATE MOFETIL\MYCOPHENOLATE MOFETIL HYDROCHLORIDE
     Indication: IMMUNOSUPPRESSION
     Dosage: UNK (2000 UNKNOWN UNIT, TOTAL DAILY DOSE)
     Route: 065
     Dates: start: 20160305, end: 20200305
  6. CORTANCYL [Concomitant]
     Active Substance: PREDNISONE
     Dosage: UNK (5 UNKNOWN UNIT, TOTAL DAILY DOSE)
     Route: 065
     Dates: start: 20191227

REACTIONS (1)
  - External ear neoplasm malignant [Recovered/Resolved]

NARRATIVE: CASE EVENT DATE: 201912
